FAERS Safety Report 7210164-2 (Version None)
Quarter: 2011Q1

REPORT INFORMATION
  Report Type: 
  Country: None (occurrence: None)
  Receive Date: 20110105
  Receipt Date: 20110103
  Transmission Date: 20110831
  Serious: Yes (Hospitalization)
  Sender: FDA-Public Use
  Company Number: FR-BRISTOL-MYERS SQUIBB COMPANY-15470297

PATIENT
  Age: 77 Year
  Sex: Female

DRUGS (2)
  1. BISOPROLOL [Concomitant]
  2. CAPTEA TABS [Suspect]
     Route: 048

REACTIONS (3)
  - NECK PAIN [None]
  - HYPOPHOSPHATAEMIA [None]
  - HYPERCALCAEMIA [None]
